FAERS Safety Report 25850092 (Version 1)
Quarter: 2025Q3

REPORT INFORMATION
  Report Type: Spontaneous
  Country: US (occurrence: US)
  Receive Date: 20250926
  Receipt Date: 20250926
  Transmission Date: 20251020
  Serious: Yes (Other)
  Sender: TORRENT PHARMA INC.
  Company Number: US-TORRENT-00014531

PATIENT
  Age: 19 Year
  Sex: Female

DRUGS (1)
  1. DICHLORPHENAMIDE [Suspect]
     Active Substance: DICHLORPHENAMIDE
     Indication: Paralysis
     Dosage: 1 DOSAGE FORM, 1X/DAY
     Route: 065

REACTIONS (7)
  - Feeling abnormal [Unknown]
  - Paralysis [Unknown]
  - Paraesthesia [Unknown]
  - Pain [Unknown]
  - Memory impairment [Unknown]
  - Loss of personal independence in daily activities [Unknown]
  - Therapy change [Unknown]

NARRATIVE: CASE EVENT DATE: 20250909
